FAERS Safety Report 9431817 (Version 1)
Quarter: 2013Q3

REPORT INFORMATION
  Report Type: Spontaneous
  Country: CA (occurrence: CA)
  Receive Date: 20130731
  Receipt Date: 20130731
  Transmission Date: 20140515
  Serious: Yes (Other)
  Sender: FDA-Public Use
  Company Number: CA-TEVA-421883USA

PATIENT
  Sex: Male

DRUGS (2)
  1. FINASTERIDE [Suspect]
     Dosage: 5 MILLIGRAM DAILY;
     Route: 048
  2. TAMSULOSIN [Suspect]
     Dosage: .4 MILLIGRAM DAILY;
     Route: 048

REACTIONS (1)
  - Urinary retention [Not Recovered/Not Resolved]
